FAERS Safety Report 9087922 (Version 3)
Quarter: 2014Q2

REPORT INFORMATION
  Report Type: Spontaneous
  Country: US (occurrence: US)
  Receive Date: 20130201
  Receipt Date: 20140516
  Transmission Date: 20141212
  Serious: Yes (Hospitalization, Disabling, Other)
  Sender: FDA-Public Use
  Company Number: US-009507513-1301USA014630

PATIENT
  Sex: Male
  Weight: 94.33 kg

DRUGS (2)
  1. PROPECIA [Suspect]
     Indication: ANDROGENETIC ALOPECIA
     Dosage: 1 MG, QD
     Route: 048
     Dates: start: 20030426, end: 20040726
  2. CIPRO (CIPROFLOXACIN) [Concomitant]
     Indication: PROSTATITIS
     Dosage: 500 MG, BID

REACTIONS (22)
  - Nerve compression [Recovered/Resolved]
  - Gallbladder disorder [Unknown]
  - Wrist surgery [Unknown]
  - Surgery [Recovered/Resolved]
  - Prostatomegaly [Unknown]
  - Hepatic enzyme increased [Unknown]
  - Painful ejaculation [Unknown]
  - Prostatic disorder [Unknown]
  - Cognitive disorder [Not Recovered/Not Resolved]
  - Urinary tract infection [Unknown]
  - Splenomegaly [Unknown]
  - Hepatomegaly [Unknown]
  - Weight decreased [Unknown]
  - Anxiety [Unknown]
  - Decreased appetite [Unknown]
  - Dysthymic disorder [Unknown]
  - Erectile dysfunction [Unknown]
  - Testicular pain [Unknown]
  - Erectile dysfunction [Unknown]
  - Libido decreased [Unknown]
  - Semen volume decreased [Unknown]
  - Sexual dysfunction [Not Recovered/Not Resolved]
